FAERS Safety Report 24246971 (Version 1)
Quarter: 2024Q3

REPORT INFORMATION
  Report Type: Spontaneous
  Country: KP (occurrence: KP)
  Receive Date: 20240826
  Receipt Date: 20240826
  Transmission Date: 20241017
  Serious: Yes (Other)
  Sender: TWI PHARMACEUTICALS
  Company Number: KP-TWI PHARMACEUTICAL, INC-20240800074

PATIENT
  Age: 50 Year
  Sex: Female

DRUGS (7)
  1. DIMETHYL FUMARATE [Suspect]
     Active Substance: DIMETHYL FUMARATE
     Indication: Psoriasis
     Dosage: 360 MG, / DAY
     Route: 065
     Dates: start: 2022
  2. DIMETHYL FUMARATE [Suspect]
     Active Substance: DIMETHYL FUMARATE
     Dosage: 30 MG, / DAY
     Route: 065
     Dates: start: 2022
  3. DIMETHYL FUMARATE [Suspect]
     Active Substance: DIMETHYL FUMARATE
     Dosage: 60 MG, / DAY
     Route: 065
     Dates: start: 2022
  4. DIMETHYL FUMARATE [Suspect]
     Active Substance: DIMETHYL FUMARATE
     Dosage: 90 MG, / DAY
     Route: 065
     Dates: start: 2022
  5. DIMETHYL FUMARATE [Suspect]
     Active Substance: DIMETHYL FUMARATE
     Dosage: 120 MG, / DAY
     Route: 065
     Dates: start: 2022
  6. DIMETHYL FUMARATE [Suspect]
     Active Substance: DIMETHYL FUMARATE
     Dosage: 240 MG, / DAY
     Route: 065
     Dates: start: 2022
  7. CALCIPOTRIOL/BETAMETHASONE ABACUS [Concomitant]
     Indication: Product used for unknown indication
     Dosage: UNK
     Route: 065

REACTIONS (1)
  - Epilepsy [Recovered/Resolved]

NARRATIVE: CASE EVENT DATE: 20220101
